FAERS Safety Report 6186375-4 (Version None)
Quarter: 2009Q2

REPORT INFORMATION
  Report Type: 
  Country: None (occurrence: None)
  Receive Date: 20090511
  Receipt Date: 20090505
  Transmission Date: 20091009
  Serious: Yes (Disabling, Other)
  Sender: FDA-Public Use
  Company Number: US-B.I. PHARMACEUTICALS,INC./RIDGEFIELD-2009-BP-04790BP

PATIENT
  Sex: Male

DRUGS (7)
  1. FLOMAX [Suspect]
     Indication: BENIGN PROSTATIC HYPERPLASIA
     Dosage: .4MG
     Route: 048
     Dates: start: 20050101
  2. FLOMAX [Suspect]
     Indication: PROSTATOMEGALY
  3. PRED FORTE [Concomitant]
  4. VITAMINS [Concomitant]
  5. ASPIRIN [Concomitant]
  6. ST. JOHN'S WORT [Concomitant]
  7. EYE DROPS [Concomitant]

REACTIONS (4)
  - BLINDNESS UNILATERAL [None]
  - CORNEAL DISORDER [None]
  - EYE HAEMORRHAGE [None]
  - OCULAR VASCULAR DISORDER [None]
